FAERS Safety Report 4490389-X (Version None)
Quarter: 2004Q3

REPORT INFORMATION
  Report Type: 
  Country: None (occurrence: None)
  Receive Date: 20040921
  Receipt Date: 20031114
  Transmission Date: 20050211
  Serious: Yes (Hospitalization, Other)
  Sender: FDA-Public Use
  Company Number: 163-20785-03110353

PATIENT
  Age: 64 Year
  Sex: Male
  Weight: 78.1 kg

DRUGS (12)
  1. THALOMID [Suspect]
     Indication: THYMOMA
     Dosage: 50-200 MG, BID, ORAL; ORAL
     Route: 048
     Dates: start: 20031021, end: 20031111
  2. TAXOTERE [Suspect]
     Indication: METASTASES TO LUNG
     Dosage: 30 MG/M2, WEEKLY
     Dates: start: 20031014, end: 20031104
  3. PREVACID [Suspect]
  4. MESTINON [Concomitant]
  5. PREDNISONE [Concomitant]
  6. IRON SUPPLEMENT [Concomitant]
  7. NEURONTIN [Concomitant]
  8. MORPHINE SULFATE [Concomitant]
  9. COUMADIN [Concomitant]
  10. DECADRON [Concomitant]
  11. DUCLOLAX (BISACODYL) [Concomitant]
  12. PRILOSEC [Concomitant]

REACTIONS (37)
  - ABDOMINAL DISTENSION [None]
  - ACUTE MYOCARDIAL INFARCTION [None]
  - ANAEMIA [None]
  - ARTHRALGIA [None]
  - ATELECTASIS [None]
  - BLOOD CREATININE INCREASED [None]
  - CARDIAC ENZYMES INCREASED [None]
  - CONDITION AGGRAVATED [None]
  - COUGH [None]
  - DECREASED APPETITE [None]
  - DIARRHOEA [None]
  - DYSGEUSIA [None]
  - DYSPNOEA [None]
  - ELECTROCARDIOGRAM ST SEGMENT ELEVATION [None]
  - ELECTROLYTE IMBALANCE [None]
  - FATIGUE [None]
  - FLATULENCE [None]
  - HAEMATOCRIT DECREASED [None]
  - HAEMOGLOBIN DECREASED [None]
  - HERPES ZOSTER [None]
  - HYPERGLYCAEMIA [None]
  - HYPERHIDROSIS [None]
  - HYPOAESTHESIA ORAL [None]
  - HYPOXIA [None]
  - INJURY [None]
  - MYASTHENIA GRAVIS [None]
  - NECK PAIN [None]
  - PAIN [None]
  - PLATELET COUNT INCREASED [None]
  - PNEUMONIA [None]
  - PNEUMOTHORAX [None]
  - RESPIRATORY FAILURE [None]
  - SEPSIS [None]
  - SOMNOLENCE [None]
  - WEIGHT DECREASED [None]
  - WHEEZING [None]
  - WHITE BLOOD CELL COUNT INCREASED [None]
